FAERS Safety Report 19304420 (Version 1)
Quarter: 2021Q2

REPORT INFORMATION
  Report Type: Spontaneous
  Country: DE (occurrence: DE)
  Receive Date: 20210526
  Receipt Date: 20210526
  Transmission Date: 20210717
  Serious: Yes (Death, Life-Threatening, Other)
  Sender: FDA-Public Use
  Company Number: DE-CELLTRION INC.-2021DE006962

PATIENT

DRUGS (3)
  1. RITUXIMAB (UNKNOWN) [Suspect]
     Active Substance: RITUXIMAB
     Indication: DIFFUSE LARGE B-CELL LYMPHOMA
  2. RITUXIMAB (UNKNOWN) [Suspect]
     Active Substance: RITUXIMAB
     Indication: POST TRANSPLANT LYMPHOPROLIFERATIVE DISORDER
     Dosage: 375 MG/M2; A MEDIAN NUMBER OF FOUR (4) DOSES
     Route: 042
  3. RITUXIMAB (UNKNOWN) [Suspect]
     Active Substance: RITUXIMAB
     Indication: POST TRANSPLANT LYMPHOPROLIFERATIVE DISORDER

REACTIONS (17)
  - Cognitive disorder [Unknown]
  - Pneumonia [Unknown]
  - Streptococcal sepsis [Unknown]
  - Pulmonary embolism [Fatal]
  - Pneumocystis jirovecii pneumonia [Unknown]
  - Pneumonia [Fatal]
  - Death [Fatal]
  - Brain oedema [Fatal]
  - Sepsis [Unknown]
  - Therapy partial responder [Unknown]
  - Sepsis [Fatal]
  - Herpes zoster meningoencephalitis [Unknown]
  - Aspiration [Fatal]
  - Leukopenia [Unknown]
  - Hip arthroplasty [Unknown]
  - Organic brain syndrome [Unknown]
  - Off label use [Unknown]
